FAERS Safety Report 17153757 (Version 1)
Quarter: 2019Q4

REPORT INFORMATION
  Report Type: Spontaneous
  Country: US (occurrence: US)
  Receive Date: 20191213
  Receipt Date: 20191213
  Transmission Date: 20200122
  Serious: No
  Sender: FDA-Public Use
  Company Number: US-TEVA-2019-US-1151016

PATIENT
  Age: 62 Year
  Sex: Male

DRUGS (3)
  1. COUMADIN [Concomitant]
     Active Substance: WARFARIN SODIUM
  2. ARMODAFINIL. [Suspect]
     Active Substance: ARMODAFINIL
     Indication: SPINAL CORD INJURY
     Dosage: 150 MILLIGRAM DAILY;
     Route: 065
     Dates: start: 201903
  3. LASIX [Concomitant]
     Active Substance: FUROSEMIDE

REACTIONS (2)
  - Urine abnormality [Unknown]
  - Therapeutic product effect decreased [Unknown]

NARRATIVE: CASE EVENT DATE: 201906
